FAERS Safety Report 19619917 (Version 2)
Quarter: 2021Q3

REPORT INFORMATION
  Report Type: Spontaneous
  Country: US (occurrence: US)
  Receive Date: 20210728
  Receipt Date: 20210819
  Transmission Date: 20211014
  Serious: No
  Sender: FDA-Public Use
  Company Number: US-GW PHARMA-202107USGW03576

PATIENT

DRUGS (1)
  1. EPIDIOLEX [Suspect]
     Active Substance: CANNABIDIOL
     Indication: EPILEPSY
     Dosage: 600 MILLIGRAM, BID (FIRST SHIPPED ON 18 FEB 2019)
     Route: 048
     Dates: start: 201902

REACTIONS (2)
  - No adverse event [Unknown]
  - Product dose omission issue [Unknown]
